FAERS Safety Report 7787493-7 (Version None)
Quarter: 2011Q3

REPORT INFORMATION
  Report Type: 
  Country: None (occurrence: None)
  Receive Date: 20110929
  Receipt Date: 20110917
  Transmission Date: 20111222
  Serious: No
  Sender: FDA-Public Use
  Company Number: US-B.I. PHARMACEUTICALS,INC./RIDGEFIELD-2011-BP-12974BP

PATIENT
  Age: 65 Year
  Sex: Female

DRUGS (8)
  1. POTASSIUM [Concomitant]
     Indication: BLOOD POTASSIUM DECREASED
     Dosage: 20 MEQ
     Route: 048
     Dates: start: 20090901
  2. BUMEX [Concomitant]
     Indication: FLUID RETENTION
  3. SOTALOL HCL [Concomitant]
     Indication: ARRHYTHMIA
     Dosage: 240 MG
     Route: 048
     Dates: start: 20110301
  4. SOTALOL HCL [Concomitant]
     Indication: ATRIAL FIBRILLATION
  5. METOLAZONE [Concomitant]
     Indication: FLUID RETENTION
  6. METOLAZONE [Concomitant]
     Indication: DIURETIC THERAPY
     Route: 048
     Dates: start: 20100901
  7. PRADAXA [Suspect]
     Indication: ATRIAL FIBRILLATION
     Dosage: 300 MG
     Route: 048
  8. BUMEX [Concomitant]
     Indication: DIURETIC THERAPY
     Dosage: 3 MG
     Route: 048
     Dates: start: 20090901

REACTIONS (3)
  - INSOMNIA [None]
  - CARDIAC FLUTTER [None]
  - PAIN IN JAW [None]
